FAERS Safety Report 8934104 (Version 1)
Quarter: 2012Q4

REPORT INFORMATION
  Report Type: 
  Country: US (occurrence: US)
  Receive Date: 20121129
  Receipt Date: 20121129
  Transmission Date: 20130627
  Serious: No
  Sender: FDA-Public Use
  Company Number: US-GLAXOSMITHKLINE-A0960985A

PATIENT
  Age: 53 Year
  Sex: Female

DRUGS (5)
  1. WELLBUTRIN SR [Suspect]
     Indication: DEPRESSION
     Dosage: 200MG Twice per day
     Route: 048
     Dates: start: 2009
  2. PREMPRO [Suspect]
     Indication: HORMONE REPLACEMENT THERAPY
     Dates: start: 2007, end: 2011
  3. CYMBALTA [Concomitant]
  4. UNKNOWN MEDICATION [Concomitant]
     Indication: FIBROMYALGIA
  5. PHENERGAN [Concomitant]

REACTIONS (2)
  - Nausea [Unknown]
  - Product quality issue [Unknown]
